FAERS Safety Report 17435390 (Version 1)
Quarter: 2020Q1

REPORT INFORMATION
  Report Type: Spontaneous
  Country: FR (occurrence: FR)
  Receive Date: 20200219
  Receipt Date: 20200219
  Transmission Date: 20200409
  Serious: Yes (Other)
  Sender: FDA-Public Use
  Company Number: FR-MYLANLABS-2020M1017989

PATIENT
  Sex: Female
  Weight: 180 kg

DRUGS (1)
  1. FONDAPARINUX [Suspect]
     Active Substance: FONDAPARINUX
     Indication: PROPHYLAXIS
     Dosage: 2.5/0.5 MG/ML
     Route: 065

REACTIONS (1)
  - Abdominal pain [Recovered/Resolved]
